FAERS Safety Report 8250107-6 (Version None)
Quarter: 2012Q1

REPORT INFORMATION
  Report Type: 
  Country: None (occurrence: None)
  Receive Date: 20120328
  Receipt Date: 20120313
  Transmission Date: 20120608
  Serious: No
  Sender: FDA-Public Use
  Company Number: B0789842A

PATIENT
  Age: 23 Year
  Sex: Female

DRUGS (2)
  1. OSELTAMIVIR PHOSPHATE [Suspect]
     Indication: H1N1 INFLUENZA
     Dosage: 75 MG, TWICE PER DAY, ORAL
     Route: 048
  2. VALACYCLOVIR HYDROCHLORIDE [Suspect]
     Indication: H1N1 INFLUENZA
     Dosage: 500 MG TWICE PER DAY, ORAL
     Route: 048

REACTIONS (2)
  - MATERNAL EXPOSURE DURING PREGNANCY [None]
  - ABORTION INDUCED [None]
